FAERS Safety Report 15366988 (Version 1)
Quarter: 2018Q3

REPORT INFORMATION
  Report Type: Spontaneous
  Country: US (occurrence: US)
  Receive Date: 20180903
  Receipt Date: 20180903
  Transmission Date: 20181010
  Serious: Yes (Disabling)
  Sender: FDA-Public Use
  Company Number: None

PATIENT
  Age: 33 Year
  Sex: Female
  Weight: 66.6 kg

DRUGS (19)
  1. LUPRON [Suspect]
     Active Substance: LEUPROLIDE ACETATE
     Indication: DYSMENORRHOEA
     Dosage: ?          QUANTITY:1 INJECTION(S);OTHER FREQUENCY:ONE?TIME INJECTION;?
     Route: 030
  2. CYMBALTA [Concomitant]
     Active Substance: DULOXETINE HYDROCHLORIDE
  3. VITAMIN B12/METHYL FOATE [Concomitant]
  4. MAGNESIUM CITRATE. [Concomitant]
     Active Substance: MAGNESIUM CITRATE
  5. DEPO?MEDROL [Concomitant]
     Active Substance: METHYLPREDNISOLONE ACETATE
  6. CAUDAL EPIDURAL LITOCASE [Concomitant]
  7. PRIMROSE OIL [Concomitant]
  8. NATURE?THROID [Concomitant]
     Active Substance: THYROID, PORCINE
  9. LUPRON [Concomitant]
     Active Substance: LEUPROLIDE ACETATE
  10. SIJ LITOCASONE [Concomitant]
  11. IRON [Concomitant]
     Active Substance: IRON
  12. CHINESE HERBAL FROM KAN HERBALS PURE ENCAOSULATIONS PROBIOTIC 5 [Concomitant]
  13. VITAMIN D [Concomitant]
     Active Substance: CHOLECALCIFEROL
  14. DETOXOSIDE [Concomitant]
  15. KENALOG [Concomitant]
     Active Substance: TRIAMCINOLONE ACETONIDE
  16. TRAMADOL. [Concomitant]
     Active Substance: TRAMADOL
  17. WOMAN^S ONE DAY MULTIVITAMIN [Concomitant]
  18. FLAX OIL [Concomitant]
  19. FLAXSEED [Concomitant]
     Active Substance: FLAX SEED

REACTIONS (15)
  - General physical health deterioration [None]
  - Dysmenorrhoea [None]
  - Loss of personal independence in daily activities [None]
  - Dyspepsia [None]
  - Feeling abnormal [None]
  - Uterine spasm [None]
  - Chest pain [None]
  - Breast pain [None]
  - Change of bowel habit [None]
  - Cognitive disorder [None]
  - Inflammation [None]
  - Mood swings [None]
  - Pelvic pain [None]
  - Impaired work ability [None]
  - Hot flush [None]

NARRATIVE: CASE EVENT DATE: 20180323
